FAERS Safety Report 6827493-4 (Version None)
Quarter: 2010Q3

REPORT INFORMATION
  Report Type: 
  Country: None (occurrence: None)
  Receive Date: 20100709
  Receipt Date: 20070117
  Transmission Date: 20110219
  Serious: No
  Sender: FDA-Public Use
  Company Number: US-PFIZER INC-2007005449

PATIENT
  Sex: Female
  Weight: 63.5 kg

DRUGS (8)
  1. CHANTIX [Suspect]
     Indication: SMOKING CESSATION THERAPY
     Route: 048
     Dates: start: 20070108, end: 20070112
  2. THYROID TAB [Concomitant]
     Route: 048
  3. EVISTA [Concomitant]
     Route: 048
  4. METFORMIN HCL [Concomitant]
     Indication: DIABETES MELLITUS
     Route: 048
  5. VITAMINS [Concomitant]
     Route: 048
  6. FISH OIL [Concomitant]
     Route: 048
  7. VYTORIN [Concomitant]
     Route: 048
  8. ACETYLSALICYLIC ACID [Concomitant]
     Route: 048

REACTIONS (1)
  - NAUSEA [None]
